FAERS Safety Report 6018594-1 (Version None)
Quarter: 2008Q4

REPORT INFORMATION
  Report Type: 
  Country: None (occurrence: None)
  Receive Date: 20081223
  Receipt Date: 20081219
  Transmission Date: 20090506
  Serious: Yes (Other)
  Sender: FDA-Public Use
  Company Number: JP-B.I. PHARMACEUTICALS,INC./RIDGEFIELD-2008-BP-18485NB

PATIENT
  Age: 74 Year
  Sex: Male

DRUGS (4)
  1. BI-SIFROL TABLETS [Suspect]
     Indication: PARKINSON'S DISEASE
     Route: 048
  2. CARBIDOPA + LEVODOPA [Suspect]
     Indication: PARKINSON'S DISEASE
     Route: 048
  3. DOPS [Suspect]
     Indication: PARKINSON'S DISEASE
     Route: 048
  4. FAROM [Suspect]
     Route: 048

REACTIONS (1)
  - HEPATITIS [None]
